FAERS Safety Report 8107155-6 (Version None)
Quarter: 2011Q4

REPORT INFORMATION
  Report Type: 
  Country: None (occurrence: None)
  Receive Date: 20111223
  Receipt Date: 20110330
  Transmission Date: 20120403
  Serious: Yes (Other)
  Sender: FDA-Public Use
  Company Number: PHHY2011US27658

PATIENT
  Sex: Male
  Weight: 27.2 kg

DRUGS (2)
  1. FOCALIN [Suspect]
  2. FOCALIN [Suspect]

REACTIONS (1)
  - CONVULSION [None]
